FAERS Safety Report 21218282 (Version 1)
Quarter: 2022Q3

REPORT INFORMATION
  Report Type: Spontaneous
  Country: US (occurrence: None)
  Receive Date: 20220816
  Receipt Date: 20220816
  Transmission Date: 20221026
  Serious: Yes (Death)
  Sender: FDA-Public Use
  Company Number: None

PATIENT
  Sex: Female

DRUGS (9)
  1. PROMACTA [Suspect]
     Active Substance: ELTROMBOPAG OLAMINE
     Indication: Immune thrombocytopenia
     Dosage: FREQUENCY : AS DIRECTED; TAKE 1 TABLET BY MOUTH TWICE WEEKLY ON AN EMPTY STOMACH 1 HOUR BEFORE OR 2
     Route: 048
     Dates: start: 20191126
  2. PROMACTA [Suspect]
     Active Substance: ELTROMBOPAG OLAMINE
     Dosage: FREQUENCY : AS DIRECTED;?
     Route: 048
  3. AMBIEN CR [Concomitant]
     Active Substance: ZOLPIDEM TARTRATE
  4. BONIVA [Concomitant]
     Active Substance: IBANDRONATE SODIUM
  5. CIPROFLOXACIN [Concomitant]
     Active Substance: CIPROFLOXACIN
  6. IBUPROFEN [Concomitant]
     Active Substance: IBUPROFEN
  7. OXYCID/APAP [Concomitant]
  8. PROPO-N/APAP [Concomitant]
  9. SERTRALINE [Concomitant]
     Active Substance: SERTRALINE HYDROCHLORIDE

REACTIONS (1)
  - Death [None]
